FAERS Safety Report 13607412 (Version 1)
Quarter: 2017Q2

REPORT INFORMATION
  Report Type: Spontaneous
  Country: BR (occurrence: BR)
  Receive Date: 20170602
  Receipt Date: 20170602
  Transmission Date: 20170830
  Serious: Yes (Other)
  Sender: FDA-Public Use
  Company Number: BR-GLAXOSMITHKLINE-BR2017GSK080972

PATIENT
  Sex: Female

DRUGS (1)
  1. NIQUITIN [Suspect]
     Active Substance: NICOTINE
     Indication: SMOKING CESSATION THERAPY
     Dosage: UNK
     Route: 062

REACTIONS (7)
  - Application site erythema [Unknown]
  - Application site pruritus [Unknown]
  - Arrhythmia [Unknown]
  - Application site haemorrhage [Unknown]
  - Hypersensitivity [Unknown]
  - Application site pain [Unknown]
  - Insomnia [Unknown]
